FAERS Safety Report 7864039-6 (Version None)
Quarter: 2011Q4

REPORT INFORMATION
  Report Type: 
  Country: None (occurrence: None)
  Receive Date: 20111028
  Receipt Date: 20111025
  Transmission Date: 20120403
  Serious: Yes (Other)
  Sender: FDA-Public Use
  Company Number: JP-BRACCO-005271

PATIENT
  Sex: Female
  Weight: 58 kg

DRUGS (2)
  1. IOPAMIDOL [Suspect]
     Indication: ANGINA PECTORIS
     Dosage: 4 ML/SEC FOR 20 SEC.
     Route: 042
     Dates: start: 20100223, end: 20100223
  2. IOPAMIDOL [Suspect]
     Indication: COMPUTERISED TOMOGRAM CORONARY ARTERY
     Dosage: 4 ML/SEC FOR 20 SEC.
     Route: 042
     Dates: start: 20100223, end: 20100223

REACTIONS (4)
  - FLUSHING [None]
  - NAUSEA [None]
  - ASTHENIA [None]
  - ALTERED STATE OF CONSCIOUSNESS [None]
